FAERS Safety Report 22040401 (Version 1)
Quarter: 2023Q1

REPORT INFORMATION
  Report Type: Spontaneous
  Country: US (occurrence: None)
  Receive Date: 20230224
  Receipt Date: 20230224
  Transmission Date: 20230417
  Serious: Yes (Other)
  Sender: FDA-Public Use
  Company Number: None

PATIENT
  Age: 45 Year
  Sex: Female
  Weight: 117 kg

DRUGS (10)
  1. LOXAPINE [Suspect]
     Active Substance: LOXAPINE
     Dosage: OTHER QUANTITY : 1 CAPSULE(S);?FREQUENCY : EVERY 12 HOURS;?
     Dates: start: 20221228, end: 20230224
  2. ATORVASTATIN [Concomitant]
     Active Substance: ATORVASTATIN
  3. LISINOPRIL [Concomitant]
     Active Substance: LISINOPRIL
  4. GLIPIZIDE [Concomitant]
     Active Substance: GLIPIZIDE
  5. fiasp insulin pen sliding scale [Concomitant]
  6. BASAGLAR [Concomitant]
     Active Substance: INSULIN GLARGINE
  7. JANUVIA [Concomitant]
     Active Substance: SITAGLIPTIN PHOSPHATE
  8. LITHIUM [Concomitant]
     Active Substance: LITHIUM
  9. INVEGA SUSTENNA [Suspect]
     Active Substance: PALIPERIDONE PALMITATE
  10. LITHIUM [Suspect]
     Active Substance: LITHIUM

REACTIONS (6)
  - Dizziness [None]
  - Angina pectoris [None]
  - Blood glucose increased [None]
  - Anorgasmia [None]
  - Genital anaesthesia [None]
  - Prescribed overdose [None]

NARRATIVE: CASE EVENT DATE: 20230224
